FAERS Safety Report 7071141-8 (Version None)
Quarter: 2010Q4

REPORT INFORMATION
  Report Type: 
  Country: None (occurrence: None)
  Receive Date: 20101029
  Receipt Date: 20101018
  Transmission Date: 20110411
  Serious: Yes (Hospitalization)
  Sender: FDA-Public Use
  Company Number: JP-JNJFOC-20101006110

PATIENT
  Age: 60 Year
  Sex: Female

DRUGS (24)
  1. INFLIXIMAB, RECOMBINANT [Suspect]
     Indication: PSORIATIC ARTHROPATHY
     Route: 042
  2. INFLIXIMAB, RECOMBINANT [Suspect]
     Route: 042
  3. INFLIXIMAB, RECOMBINANT [Suspect]
     Dosage: WEEK 2 OF EXTENSION STUDY
     Route: 042
  4. INFLIXIMAB, RECOMBINANT [Suspect]
     Route: 042
  5. INFLIXIMAB, RECOMBINANT [Suspect]
     Route: 042
  6. INFLIXIMAB, RECOMBINANT [Suspect]
     Route: 042
  7. INFLIXIMAB, RECOMBINANT [Suspect]
     Dosage: WEEK 48 DOSE
     Route: 042
  8. INFLIXIMAB, RECOMBINANT [Suspect]
     Route: 042
  9. INFLIXIMAB, RECOMBINANT [Suspect]
     Indication: PSORIASIS
     Route: 042
  10. INFLIXIMAB, RECOMBINANT [Suspect]
     Route: 042
  11. INFLIXIMAB, RECOMBINANT [Suspect]
     Route: 042
  12. INFLIXIMAB, RECOMBINANT [Suspect]
     Route: 042
  13. INFLIXIMAB, RECOMBINANT [Suspect]
     Route: 042
  14. INFLIXIMAB, RECOMBINANT [Suspect]
     Dosage: WEEK 48 DOSE
     Route: 042
  15. INFLIXIMAB, RECOMBINANT [Suspect]
     Route: 042
  16. INFLIXIMAB, RECOMBINANT [Suspect]
     Dosage: WEEK 2 OF EXTENSION STUDY
     Route: 042
  17. PLACEBO [Suspect]
     Indication: PSORIATIC ARTHROPATHY
     Dosage: WEEK 0 OF EXTENSION STUDY
  18. PLACEBO [Suspect]
  19. PLACEBO [Suspect]
  20. PLACEBO [Suspect]
  21. PLACEBO [Suspect]
     Indication: PSORIASIS
     Dosage: WEEK 0 OF EXTENSION STUDY
  22. PLACEBO [Suspect]
  23. PLACEBO [Suspect]
  24. PLACEBO [Suspect]

REACTIONS (1)
  - SMALL CELL LUNG CANCER STAGE UNSPECIFIED [None]
